FAERS Safety Report 8299616-4 (Version None)
Quarter: 2012Q2

REPORT INFORMATION
  Report Type: 
  Country: None (occurrence: None)
  Receive Date: 20120419
  Receipt Date: 20120409
  Transmission Date: 20120825
  Serious: Yes (Other)
  Sender: FDA-Public Use
  Company Number: JP-GLAXOSMITHKLINE-B0495085A

PATIENT
  Age: 49 Year
  Sex: Male

DRUGS (24)
  1. PAXIL [Suspect]
     Indication: DEPRESSION
     Dosage: 10MG PER DAY
     Route: 048
     Dates: start: 20050101, end: 20050801
  2. FLUVOXAMINE MALEATE [Concomitant]
     Dosage: 100MG PER DAY
     Route: 048
     Dates: start: 20050801, end: 20050801
  3. FLUVOXAMINE MALEATE [Concomitant]
     Dosage: 150MG PER DAY
     Route: 048
     Dates: start: 20041110, end: 20050801
  4. DOGMATYL [Concomitant]
     Dosage: 150MG PER DAY
     Route: 065
     Dates: end: 20050901
  5. DOGMATYL [Concomitant]
     Dosage: 150MG PER DAY
     Route: 065
     Dates: start: 20051207
  6. DEPAKENE [Concomitant]
     Dosage: 400MG PER DAY
     Route: 048
     Dates: start: 20060301, end: 20060301
  7. DEPAKENE [Concomitant]
     Dosage: 800MG PER DAY
     Route: 048
     Dates: start: 20060301, end: 20060601
  8. LITHIUM CARBONATE [Concomitant]
     Dosage: 300MG PER DAY
     Route: 048
     Dates: start: 20060601
  9. ALPRAZOLAM [Concomitant]
     Dosage: 1.2MG PER DAY
     Route: 048
     Dates: end: 20051201
  10. LORAZEPAM [Concomitant]
     Dosage: 1.5MG PER DAY
     Route: 048
     Dates: start: 20041110, end: 20041201
  11. VALPROATE SODIUM [Concomitant]
     Dosage: 200MG PER DAY
     Route: 048
  12. PAXIL [Suspect]
     Dosage: 10MG PER DAY
     Route: 048
     Dates: start: 20051207
  13. FLUVOXAMINE MALEATE [Concomitant]
     Dosage: 100MG PER DAY
     Route: 048
     Dates: end: 20041109
  14. DEPAKENE [Concomitant]
     Dosage: 200MG PER DAY
     Route: 048
     Dates: start: 20060201, end: 20060301
  15. HALCION [Concomitant]
     Dosage: .25MG PER DAY
     Route: 048
     Dates: end: 20041109
  16. PAXIL [Suspect]
     Dosage: 20MG PER DAY
     Route: 048
     Dates: start: 20050801, end: 20050901
  17. ALPRAZOLAM [Concomitant]
     Dosage: .8MG PER DAY
     Route: 048
  18. ZOLPIDEM [Concomitant]
     Dosage: 10MG PER DAY
     Route: 048
     Dates: start: 20041110, end: 20050201
  19. DOGMATYL [Concomitant]
     Dosage: 50MG PER DAY
     Route: 065
     Dates: start: 20050901, end: 20051206
  20. PAXIL [Suspect]
     Dosage: 30MG PER DAY
     Route: 048
     Dates: start: 20050901, end: 20051206
  21. FLUVOXAMINE MALEATE [Concomitant]
     Dosage: 10MG PER DAY
     Route: 048
     Dates: start: 20050801, end: 20050901
  22. DEPAKENE [Concomitant]
     Dosage: 400MG PER DAY
     Route: 048
     Dates: start: 20051201, end: 20060201
  23. AMOBAN [Concomitant]
     Dosage: 15MG PER DAY
     Route: 048
     Dates: start: 20050201, end: 20051206
  24. AMOBAN [Concomitant]
     Dosage: 7.5MG PER DAY
     Route: 048
     Dates: start: 20051207

REACTIONS (11)
  - ACTIVATION SYNDROME [None]
  - ANGER [None]
  - AFFECT LABILITY [None]
  - BIPOLAR II DISORDER [None]
  - MOOD ALTERED [None]
  - FEELING GUILTY [None]
  - AGGRESSION [None]
  - IMPULSIVE BEHAVIOUR [None]
  - IRRITABILITY [None]
  - HOSTILITY [None]
  - ANXIETY [None]
